FAERS Safety Report 18409650 (Version 1)
Quarter: 2020Q4

REPORT INFORMATION
  Report Type: Spontaneous
  Country: JP (occurrence: JP)
  Receive Date: 20201021
  Receipt Date: 20201021
  Transmission Date: 20210114
  Serious: Yes (Other)
  Sender: FDA-Public Use
  Company Number: JP-ROCHE-2638065

PATIENT
  Age: 42 Year
  Sex: Female
  Weight: 57 kg

DRUGS (5)
  1. TECENTRIQ [Suspect]
     Active Substance: ATEZOLIZUMAB
     Indication: TRIPLE NEGATIVE BREAST CANCER
     Route: 041
  2. SEISHOKU [Concomitant]
     Active Substance: SODIUM CHLORIDE
     Dosage: DOSAGE IS UNCERTAIN.
     Route: 042
     Dates: start: 20200207, end: 20200323
  3. ABRAXANE [Suspect]
     Active Substance: PACLITAXEL
     Indication: TRIPLE NEGATIVE BREAST CANCER
     Dosage: THREE WEEKS ON AND ONE WEEK OFF
     Route: 041
     Dates: start: 20200207, end: 20200323
  4. SAMTIREL [Concomitant]
     Active Substance: ATOVAQUONE
     Dosage: DOSAGE IS UNCERTAIN.
     Route: 048
     Dates: start: 20200207, end: 20200323
  5. PACLITAXEL ALBUMIN [Concomitant]
     Active Substance: PACLITAXEL
     Indication: TRIPLE NEGATIVE BREAST CANCER
     Dosage: DOSAGE IS UNCERTAIN.
     Route: 041

REACTIONS (1)
  - Organising pneumonia [Recovered/Resolved]

NARRATIVE: CASE EVENT DATE: 20200404
